FAERS Safety Report 8848861 (Version 1)
Quarter: 2012Q4

REPORT INFORMATION
  Report Type: 
  Country: FR (occurrence: FR)
  Receive Date: 20121018
  Receipt Date: 20121018
  Transmission Date: 20130627
  Serious: Yes (Hospitalization)
  Sender: FDA-Public Use
  Company Number: FR-UCBSA-068853

PATIENT
  Age: 86 Year
  Sex: Female

DRUGS (14)
  1. DIFFU-K [Suspect]
     Dosage: 1 CAPSULE DAILY
     Route: 048
     Dates: end: 20120730
  2. NEUPRO [Suspect]
     Indication: PARKINSON^S DISEASE
     Dosage: DAILY DOSE 4 MG
     Route: 062
     Dates: end: 20120730
  3. ARTOTEC [Suspect]
     Dosage: DAILY DOSE: 75 MG/0.2 MG X2
     Route: 048
     Dates: end: 20120730
  4. COLECALCIFEROL [Suspect]
     Indication: OSTEOPOROSIS
     Route: 048
     Dates: end: 20120730
  5. CACIT D3 [Suspect]
     Indication: OSTEOPOROSIS
     Dosage: DAILY DOSE 1000 MG
     Route: 048
     Dates: end: 20120730
  6. VESICARE [Suspect]
     Indication: URINARY RETENTION
     Dosage: DAILY DOSE :5 MG
     Route: 048
     Dates: end: 20120730
  7. ACTONEL [Concomitant]
  8. GAVISCON [Concomitant]
  9. MODOPAR LP [Concomitant]
     Dosage: 100 MG/25 MG
  10. ATHYMIL [Concomitant]
  11. IXPRIM [Concomitant]
  12. IMOVANE [Concomitant]
     Dosage: 7.5 MG
  13. FORLAX [Concomitant]
     Dosage: DOSE: 4000
  14. INEXIUM [Concomitant]
     Dosage: 20 MG

REACTIONS (5)
  - Renal failure acute [Recovered/Resolved]
  - Hyperkalaemia [Recovered/Resolved]
  - Hypercalcaemia [Recovered/Resolved]
  - Respiratory tract infection [Recovered/Resolved]
  - Acute pulmonary oedema [Recovered/Resolved]
